FAERS Safety Report 4837464-5 (Version None)
Quarter: 2005Q4

REPORT INFORMATION
  Report Type: 
  Country: None (occurrence: None)
  Receive Date: 20051128
  Receipt Date: 20051118
  Transmission Date: 20060501
  Serious: Yes (Hospitalization)
  Sender: FDA-Public Use
  Company Number: SE-JNJFOC-20051105514

PATIENT
  Age: 11 Year
  Sex: Male

DRUGS (7)
  1. RISPERDAL [Suspect]
     Indication: DRUG USE FOR UNKNOWN INDICATION
     Route: 048
  2. THERALEN [Concomitant]
  3. THERALEN [Concomitant]
  4. TEGRETOL [Concomitant]
  5. TRIMONIL [Concomitant]
  6. ESUCOS [Concomitant]
     Dosage: 10MG MANE (IN THE MORNING)
  7. ESUCOS [Concomitant]

REACTIONS (2)
  - DIABETES MELLITUS INSULIN-DEPENDENT [None]
  - HYPERGLYCAEMIA [None]
